FAERS Safety Report 20658836 (Version 1)
Quarter: 2022Q1

REPORT INFORMATION
  Report Type: Spontaneous
  Country: US (occurrence: None)
  Receive Date: 20220331
  Receipt Date: 20220331
  Transmission Date: 20220424
  Serious: Yes (Hospitalization)
  Sender: FDA-Public Use
  Company Number: None

PATIENT
  Sex: Female

DRUGS (5)
  1. ESBRIET [Suspect]
     Active Substance: PIRFENIDONE
     Indication: Idiopathic pulmonary fibrosis
     Dosage: TAKE 1 TABLET BY MOUTH THREE TIMES DAILY AT THE SAME TIME EACH DAY WITH FOOD
     Route: 048
     Dates: start: 20210507
  2. CYCLOBENZAPRINE HYDROCHLORIDE [Concomitant]
     Active Substance: CYCLOBENZAPRINE HYDROCHLORIDE
  3. LANTUS SOLOS INJ [Concomitant]
  4. LIPITOR [Concomitant]
  5. METFORMIN [Concomitant]

REACTIONS (2)
  - Surgery [None]
  - Therapy interrupted [None]
